FAERS Safety Report 5982112-4 (Version None)
Quarter: 2008Q4

REPORT INFORMATION
  Report Type: 
  Country: None (occurrence: None)
  Receive Date: 20081202
  Receipt Date: 20081117
  Transmission Date: 20090506
  Serious: Yes (Death, Hospitalization)
  Sender: FDA-Public Use
  Company Number: 2008BM000220

PATIENT
  Age: 8 Year
  Sex: Male

DRUGS (1)
  1. NAGLAZYME [Suspect]
     Indication: MUCOPOLYSACCHARIDOSIS VI
     Dosage: QW;IVDRP
     Route: 041
     Dates: end: 20081106

REACTIONS (1)
  - UPPER RESPIRATORY TRACT INFECTION [None]
